FAERS Safety Report 16462344 (Version 2)
Quarter: 2019Q2

REPORT INFORMATION
  Report Type: Spontaneous
  Country: CN (occurrence: CN)
  Receive Date: 20190621
  Receipt Date: 20190626
  Transmission Date: 20190711
  Serious: Yes (Death, Other)
  Sender: FDA-Public Use
  Company Number: CN-PFIZER INC-2019264885

PATIENT

DRUGS (1)
  1. PANTOLOC [Suspect]
     Active Substance: PANTOPRAZOLE SODIUM
     Dosage: 40 MILLIGRAM
     Route: 042
     Dates: start: 20190607, end: 20190607

REACTIONS (2)
  - Anaphylactic shock [Fatal]
  - Hyperpyrexia [Unknown]

NARRATIVE: CASE EVENT DATE: 20190607
